FAERS Safety Report 22102735 (Version 1)
Quarter: 2023Q1

REPORT INFORMATION
  Report Type: Spontaneous
  Country: US (occurrence: None)
  Receive Date: 20230315
  Receipt Date: 20230315
  Transmission Date: 20230418
  Serious: No
  Sender: FDA-Public Use
  Company Number: None

PATIENT
  Age: 60 Year
  Sex: Male
  Weight: 69.75 kg

DRUGS (3)
  1. PAXLOVID [Suspect]
     Active Substance: NIRMATRELVIR\RITONAVIR
     Indication: COVID-19
     Dosage: OTHER QUANTITY : 3 TABLET(S);?FREQUENCY : TWICE A DAY;?
     Dates: start: 20230227, end: 20230304
  2. LISINOPRIL [Concomitant]
     Active Substance: LISINOPRIL
  3. Rostuvastatin [Concomitant]

REACTIONS (2)
  - Fatigue [None]
  - COVID-19 [None]

NARRATIVE: CASE EVENT DATE: 20230307
